FAERS Safety Report 7470121-8 (Version None)
Quarter: 2011Q2

REPORT INFORMATION
  Report Type: 
  Country: None (occurrence: None)
  Receive Date: 20110510
  Receipt Date: 20101130
  Transmission Date: 20111010
  Serious: Yes (Hospitalization)
  Sender: FDA-Public Use
  Company Number: A0905700A

PATIENT
  Age: 48 Year
  Sex: Male

DRUGS (12)
  1. ADVAIR DISKUS 100/50 [Concomitant]
  2. ALBUTEROL [Concomitant]
  3. COREG [Concomitant]
  4. ALTACE [Concomitant]
  5. METFORMIN HCL [Concomitant]
  6. LASIX [Concomitant]
  7. LIPITOR [Concomitant]
  8. AVANDIA [Suspect]
  9. KAY CIEL DURA-TABS [Concomitant]
  10. LANOXIN [Concomitant]
  11. SPIRIVA [Concomitant]
  12. SINGULAIR [Concomitant]

REACTIONS (1)
  - ISCHAEMIC CARDIOMYOPATHY [None]
